FAERS Safety Report 8638016 (Version 4)
Quarter: 2012Q4

REPORT INFORMATION
  Report Type: 
  Country: BR (occurrence: BR)
  Receive Date: 20120627
  Receipt Date: 20121004
  Transmission Date: 20130627
  Serious: Yes (Death, Hospitalization)
  Sender: FDA-Public Use
  Company Number: BR-PFIZER INC-2012144614

PATIENT
  Age: 64 Year
  Sex: Male
  Weight: 69 kg

DRUGS (9)
  1. SUTENT [Suspect]
     Indication: RENAL CELL CARCINOMA
     Dosage: 50 mg, once daily cycle 4 per 2
     Route: 048
     Dates: start: 20120605
  2. SUTENT [Suspect]
     Route: 042
  3. NATRILIX [Concomitant]
     Indication: HYPERTENSION
     Dosage: 2.5 mg, 1x/day
  4. SELOZOK [Concomitant]
     Indication: HYPERTENSION
     Dosage: 50 mg, 1x/day
  5. PREVENCOR [Concomitant]
     Indication: HYPERTENSION
     Dosage: 40 mg, 1x/day
  6. DIMORF [Concomitant]
     Dosage: 10 mg, every 4 hours
  7. CLONAZEPAM [Concomitant]
     Dosage: once at night
  8. VITERGAN [Concomitant]
     Dosage: once at night
  9. HENGER [Concomitant]
     Indication: SUPPLEMENTATION THERAPY

REACTIONS (13)
  - Respiratory failure [Fatal]
  - Multi-organ failure [Fatal]
  - Respiratory disorder [Unknown]
  - Tongue dry [Unknown]
  - Tongue discolouration [Unknown]
  - Skin exfoliation [Unknown]
  - Nausea [Unknown]
  - Yellow skin [Unknown]
  - Hypophagia [Unknown]
  - Blister [Unknown]
  - Pain in extremity [Unknown]
  - Decreased appetite [Unknown]
  - Incorrect route of drug administration [Unknown]
